FAERS Safety Report 23568754 (Version 1)
Quarter: 2024Q1

REPORT INFORMATION
  Report Type: Spontaneous
  Country: GB (occurrence: GB)
  Receive Date: 20240227
  Receipt Date: 20240227
  Transmission Date: 20240409
  Serious: Yes (Other)
  Sender: FDA-Public Use
  Company Number: GB-MHRA-TPP61846713C1358520YC1707755057286

PATIENT
  Age: 43 Year
  Sex: Male
  Weight: 134 kg

DRUGS (8)
  1. TRAMADOL [Suspect]
     Active Substance: TRAMADOL\TRAMADOL HYDROCHLORIDE
     Indication: Ill-defined disorder
     Dosage: UNK
     Route: 065
     Dates: start: 20240212
  2. CHLORAMPHENICOL [Concomitant]
     Active Substance: CHLORAMPHENICOL
     Indication: Ill-defined disorder
     Dosage: UNK UNK, FOUR TIMES/DAY (TO BE USED FOUR TIMES PER DAY AS DIRECTED BY OP...)
     Route: 065
     Dates: start: 20230516, end: 20231229
  3. DEXAMETHASONE SODIUM PHOSPHATE [Concomitant]
     Active Substance: DEXAMETHASONE PHOSPHATE\DEXAMETHASONE SODIUM PHOSPHATE
     Indication: Ill-defined disorder
     Dosage: UNK UNK, FOUR TIMES/DAY (USE FOUR TIMES A DAY AS DIRECTED BY OPTHALMOLOGY)
     Route: 065
     Dates: start: 20230516, end: 20231229
  4. DICLOFENAC SODIUM [Concomitant]
     Active Substance: DICLOFENAC\DICLOFENAC SODIUM
     Indication: Ill-defined disorder
     Dosage: 1 DOSAGE FORM, 3 TIMES A DAY (ONE TO BE TAKEN THREE TIMES A DAY)
     Route: 065
     Dates: start: 20090119, end: 20231229
  5. DOXYCYCLINE [Concomitant]
     Active Substance: DOXYCYCLINE
     Indication: Ill-defined disorder
     Dosage: UNK (TWO TO BE TAKEN ON THE FIRST DAY THEN ONE TO BE...)
     Route: 065
     Dates: start: 20231115, end: 20231228
  6. FELDENE [Concomitant]
     Active Substance: PIROXICAM
     Indication: Ill-defined disorder
     Dosage: UNK UNK, ONCE A DAY (OD)
     Route: 065
     Dates: start: 20030618, end: 20231229
  7. NAPROXEN [Concomitant]
     Active Substance: NAPROXEN
     Indication: Ill-defined disorder
     Dosage: 1 DOSAGE FORM, 3 TIMES A DAY (ONE TO BE TAKEN THREE TIMES A DAY)
     Route: 065
     Dates: start: 20231120, end: 20231219
  8. SILDENAFIL [Concomitant]
     Active Substance: SILDENAFIL
     Indication: Ill-defined disorder
     Dosage: 1 DOSAGE FORM (ONE TO BE TAKEN AS DIRECTED)
     Route: 065
     Dates: start: 20170818, end: 20231229

REACTIONS (1)
  - Hallucinations, mixed [Unknown]

NARRATIVE: CASE EVENT DATE: 20240212
